FAERS Safety Report 6086591-6 (Version None)
Quarter: 2009Q1

REPORT INFORMATION
  Report Type: 
  Country: None (occurrence: None)
  Receive Date: 20090223
  Receipt Date: 20090209
  Transmission Date: 20090719
  Serious: Yes (Hospitalization, Other)
  Sender: FDA-Public Use
  Company Number: NO-PFIZER INC-2009171188

PATIENT

DRUGS (1)
  1. ZOLOFT [Suspect]
     Dosage: FREQUENCY: X 1, DAILY;
     Route: 048

REACTIONS (7)
  - CONVULSION [None]
  - HEADACHE [None]
  - LOSS OF CONSCIOUSNESS [None]
  - METABOLIC DISORDER [None]
  - PAIN [None]
  - PYREXIA [None]
  - WEIGHT INCREASED [None]
